FAERS Safety Report 19269179 (Version 1)
Quarter: 2021Q2

REPORT INFORMATION
  Report Type: Spontaneous
  Country: US (occurrence: US)
  Receive Date: 20210518
  Receipt Date: 20210518
  Transmission Date: 20210717
  Serious: Yes (Other)
  Sender: FDA-Public Use
  Company Number: None

PATIENT
  Age: 73 Year
  Sex: Male
  Weight: 94.5 kg

DRUGS (17)
  1. PRADAXA [Concomitant]
     Active Substance: DABIGATRAN ETEXILATE MESYLATE
  2. DIPHENOXYLATE?ATROPINE [Concomitant]
     Active Substance: ATROPINE\DIPHENOXYLATE
  3. HEPARIN FLUSH LOCK [Concomitant]
  4. FUROSEMIDE. [Concomitant]
     Active Substance: FUROSEMIDE
  5. LOPERAMIDE [Concomitant]
     Active Substance: LOPERAMIDE
  6. PROBIOTID [Concomitant]
  7. LENVIMA [Concomitant]
     Active Substance: LENVATINIB
  8. FLUODOCORTISONE [Concomitant]
  9. ONDANSETRON [Concomitant]
     Active Substance: ONDANSETRON
  10. EVEROLIMUS. [Suspect]
     Active Substance: EVEROLIMUS
     Indication: RENAL CANCER
     Route: 048
     Dates: start: 20210407
  11. TYLENOL WITH CODEINE [Concomitant]
     Active Substance: ACETAMINOPHEN\CODEINE PHOSPHATE
  12. HYDROCODONE?APAP [Concomitant]
     Active Substance: ACETAMINOPHEN\HYDROCODONE
  13. SALINE FLUSH [Concomitant]
     Active Substance: SODIUM CHLORIDE
  14. DAPTOMYCIN. [Concomitant]
     Active Substance: DAPTOMYCIN
  15. HYDORCORTISONE [Concomitant]
  16. TERAZOSIN [Concomitant]
     Active Substance: TERAZOSIN HYDROCHLORIDE
  17. MULTIVITAMIN [Concomitant]
     Active Substance: VITAMINS

REACTIONS (1)
  - Hypertension [None]

NARRATIVE: CASE EVENT DATE: 20210518
